FAERS Safety Report 12100083 (Version 3)
Quarter: 2016Q2

REPORT INFORMATION
  Report Type: Spontaneous
  Country: CA (occurrence: CA)
  Receive Date: 20160222
  Receipt Date: 20160428
  Transmission Date: 20160815
  Serious: Yes (Other)
  Sender: FDA-Public Use
  Company Number: CA-PFIZER INC-2016101315

PATIENT
  Age: 10 Year
  Sex: Male

DRUGS (1)
  1. CHILDRENS ADVIL [Suspect]
     Active Substance: IBUPROFEN
     Indication: PYREXIA
     Dosage: UNK
     Dates: start: 201602

REACTIONS (4)
  - Product quality issue [Unknown]
  - Seizure [Recovered/Resolved]
  - Poor quality drug administered [Unknown]
  - Drug administration error [Unknown]

NARRATIVE: CASE EVENT DATE: 201602
